FAERS Safety Report 19932127 (Version 2)
Quarter: 2021Q4

REPORT INFORMATION
  Report Type: Spontaneous
  Country: JP (occurrence: JP)
  Receive Date: 20211008
  Receipt Date: 20211129
  Transmission Date: 20220303
  Serious: Yes (Hospitalization, Congenital Anomaly, Other)
  Sender: FDA-Public Use
  Company Number: JP-NOVOPROD-845054

PATIENT
  Sex: Female
  Weight: .95 kg

DRUGS (2)
  1. TRESIBA [Suspect]
     Active Substance: INSULIN DEGLUDEC
     Indication: Type 1 diabetes mellitus
     Dosage: UNK
     Route: 064
  2. NOVOLIN R [Suspect]
     Active Substance: INSULIN HUMAN
     Indication: Type 1 diabetes mellitus
     Dosage: UNK
     Route: 064

REACTIONS (10)
  - Hypoglycaemia neonatal [Unknown]
  - Respiratory disorder neonatal [Unknown]
  - Corneal opacity [Unknown]
  - Pericardial effusion [Unknown]
  - Umbilical cord vascular disorder [Unknown]
  - Foetal heart rate deceleration abnormality [Unknown]
  - Microphthalmos [Unknown]
  - Premature baby [Recovered/Resolved]
  - Low birth weight baby [Unknown]
  - Foetal exposure during pregnancy [Recovered/Resolved]

NARRATIVE: CASE EVENT DATE: 20191001
